FAERS Safety Report 6031915-9 (Version None)
Quarter: 2009Q1

REPORT INFORMATION
  Report Type: 
  Country: None (occurrence: None)
  Receive Date: 20090108
  Receipt Date: 20081231
  Transmission Date: 20090719
  Serious: Yes (Hospitalization)
  Sender: FDA-Public Use
  Company Number: FR-ROCHE-605933

PATIENT
  Sex: Female
  Weight: 59 kg

DRUGS (4)
  1. INTERFERON ALFA-2A [Suspect]
     Indication: METASTATIC RENAL CELL CARCINOMA
     Dosage: DOSE: 9 MUI
     Route: 065
     Dates: start: 20081127
  2. INTERFERON ALFA-2A [Suspect]
     Route: 065
  3. BEVACIZUMAB [Suspect]
     Indication: METASTATIC RENAL CELL CARCINOMA
     Route: 065
     Dates: start: 20081127
  4. BEVACIZUMAB [Suspect]
     Route: 065

REACTIONS (1)
  - NERVOUS SYSTEM DISORDER [None]
